FAERS Safety Report 13160417 (Version 4)
Quarter: 2017Q4

REPORT INFORMATION
  Report Type: Report from Study
  Country: JP (occurrence: JP)
  Receive Date: 20170127
  Receipt Date: 20171223
  Transmission Date: 20180320
  Serious: Yes (Death, Hospitalization, Other)
  Sender: FDA-Public Use
  Company Number: JP-AMGEN-JPNNI2017014562

PATIENT
  Age: 77 Year
  Sex: Male

DRUGS (32)
  1. CARFILZOMIB [Suspect]
     Active Substance: CARFILZOMIB
     Dosage: 23 MG/M2, UNK
     Route: 041
     Dates: start: 20161128, end: 20161129
  2. DEXAMETHASONE. [Concomitant]
     Active Substance: DEXAMETHASONE
     Dosage: 40 MG, UNK
     Dates: start: 20161031
  3. CARFILZOMIB [Suspect]
     Active Substance: CARFILZOMIB
     Indication: PLASMA CELL MYELOMA
     Dosage: 11 MG/M2, UNK
     Route: 041
     Dates: start: 20160929, end: 20160929
  4. CARFILZOMIB [Suspect]
     Active Substance: CARFILZOMIB
     Dosage: 23 MG/M2, UNK
     Route: 041
     Dates: start: 20161006, end: 20161007
  5. CARFILZOMIB [Suspect]
     Active Substance: CARFILZOMIB
     Dosage: 23 MG/M2, UNK
     Route: 041
     Dates: start: 20161024, end: 20161025
  6. DEXAMETHASONE. [Concomitant]
     Active Substance: DEXAMETHASONE
     Dosage: 40 MG, UNK
     Dates: start: 20161024
  7. CARFILZOMIB [Suspect]
     Active Substance: CARFILZOMIB
     Dosage: 23 MG/M2, UNK
     Route: 041
     Dates: start: 20161031, end: 20161101
  8. CARFILZOMIB [Suspect]
     Active Substance: CARFILZOMIB
     Dosage: 23 MG/M2, UNK
     Route: 041
     Dates: start: 20161121, end: 20161122
  9. CARFILZOMIB [Suspect]
     Active Substance: CARFILZOMIB
     Dosage: 23 MG/M2, UNK
     Route: 041
     Dates: start: 20170104, end: 20170105
  10. DEXAMETHASONE. [Concomitant]
     Active Substance: DEXAMETHASONE
     Dosage: 40 MG, UNK
     Dates: start: 20161219
  11. CARFILZOMIB [Suspect]
     Active Substance: CARFILZOMIB
     Dosage: 23 MG/M2, UNK
     Route: 041
     Dates: start: 20161012, end: 20161013
  12. LENALIDOMIDE [Concomitant]
     Active Substance: LENALIDOMIDE
     Dosage: UNK
     Dates: start: 20161121, end: 20161211
  13. DEXAMETHASONE. [Concomitant]
     Active Substance: DEXAMETHASONE
     Dosage: 40 MG, UNK
     Dates: start: 20160929
  14. DEXAMETHASONE. [Concomitant]
     Active Substance: DEXAMETHASONE
     Dosage: 20 MG, UNK
     Dates: start: 20161114
  15. CARFILZOMIB [Suspect]
     Active Substance: CARFILZOMIB
     Dosage: 23 MG/M2, UNK
     Route: 041
     Dates: start: 20161107, end: 20161108
  16. CARFILZOMIB [Suspect]
     Active Substance: CARFILZOMIB
     Dosage: 23 MG/M2, UNK
     Route: 041
     Dates: start: 20161219, end: 20161220
  17. DEXAMETHASONE. [Concomitant]
     Active Substance: DEXAMETHASONE
     Dosage: 40 MG, UNK
     Dates: start: 20161226
  18. DEXAMETHASONE. [Concomitant]
     Active Substance: DEXAMETHASONE
     Dosage: 40 MG, UNK
     Dates: start: 20170104
  19. DEXAMETHASONE. [Concomitant]
     Active Substance: DEXAMETHASONE
     Dosage: 20 MG, UNK
     Dates: start: 20170106
  20. LENALIDOMIDE [Concomitant]
     Active Substance: LENALIDOMIDE
     Dosage: UNK
     Dates: start: 20161024, end: 20161113
  21. LENALIDOMIDE [Concomitant]
     Active Substance: LENALIDOMIDE
     Dosage: UNK
     Dates: start: 20161219, end: 20170106
  22. DEXAMETHASONE. [Concomitant]
     Active Substance: DEXAMETHASONE
     Dosage: 40 MG, UNK
     Dates: start: 20161012
  23. DEXAMETHASONE. [Concomitant]
     Active Substance: DEXAMETHASONE
     Dosage: 40 MG, UNK
     Dates: start: 20161121
  24. DEXAMETHASONE. [Concomitant]
     Active Substance: DEXAMETHASONE
     Dosage: 40 MG, UNK
     Dates: start: 20161205
  25. DEXAMETHASONE. [Concomitant]
     Active Substance: DEXAMETHASONE
     Dosage: 20 MG, UNK
     Dates: start: 20161212
  26. CARFILZOMIB [Suspect]
     Active Substance: CARFILZOMIB
     Dosage: 23 MG/M2, UNK
     Route: 041
     Dates: start: 20161205, end: 20161206
  27. CARFILZOMIB [Suspect]
     Active Substance: CARFILZOMIB
     Dosage: 23 MG/M2, UNK
     Route: 041
     Dates: start: 20161226, end: 20161227
  28. LENALIDOMIDE [Concomitant]
     Active Substance: LENALIDOMIDE
     Dosage: UNK
     Dates: start: 20160929, end: 20161019
  29. DEXAMETHASONE. [Concomitant]
     Active Substance: DEXAMETHASONE
     Dosage: 40 MG, UNK
     Dates: start: 20161006
  30. DEXAMETHASONE. [Concomitant]
     Active Substance: DEXAMETHASONE
     Dosage: 20 MG, UNK
     Dates: start: 20161019
  31. DEXAMETHASONE. [Concomitant]
     Active Substance: DEXAMETHASONE
     Dosage: 40 MG, UNK
     Dates: start: 20161107
  32. DEXAMETHASONE. [Concomitant]
     Active Substance: DEXAMETHASONE
     Dosage: 40 MG, UNK
     Dates: start: 20161128

REACTIONS (3)
  - Chronic kidney disease [Not Recovered/Not Resolved]
  - Ventricular fibrillation [Fatal]
  - Hyperkalaemia [Not Recovered/Not Resolved]

NARRATIVE: CASE EVENT DATE: 20170104
